FAERS Safety Report 23599230 (Version 1)
Quarter: 2024Q1

REPORT INFORMATION
  Report Type: Spontaneous
  Country: US (occurrence: US)
  Receive Date: 20240306
  Receipt Date: 20240306
  Transmission Date: 20240409
  Serious: Yes (Hospitalization)
  Sender: FDA-Public Use
  Company Number: US-NOVITIUMPHARMA-2024USNVP00205

PATIENT
  Age: 62 Year
  Sex: Female

DRUGS (16)
  1. LIDOCAINE HYDROCHLORIDE [Suspect]
     Active Substance: LIDOCAINE HYDROCHLORIDE
     Indication: General anaesthesia
  2. LIDOCAINE HYDROCHLORIDE [Suspect]
     Active Substance: LIDOCAINE HYDROCHLORIDE
  3. LIDOCAINE HYDROCHLORIDE [Suspect]
     Active Substance: LIDOCAINE HYDROCHLORIDE
  4. MIDAZOLAM [Concomitant]
     Active Substance: MIDAZOLAM
     Indication: General anaesthesia
  5. MIDAZOLAM [Concomitant]
     Active Substance: MIDAZOLAM
  6. MIDAZOLAM [Concomitant]
     Active Substance: MIDAZOLAM
  7. FENTANYL [Concomitant]
     Active Substance: FENTANYL\FENTANYL CITRATE
     Indication: General anaesthesia
     Dosage: MICROGRAM
  8. FENTANYL [Concomitant]
     Active Substance: FENTANYL\FENTANYL CITRATE
  9. FENTANYL [Concomitant]
     Active Substance: FENTANYL\FENTANYL CITRATE
  10. PROPOFOL [Concomitant]
     Active Substance: PROPOFOL
     Indication: General anaesthesia
  11. PROPOFOL [Concomitant]
     Active Substance: PROPOFOL
  12. PROPOFOL [Concomitant]
     Active Substance: PROPOFOL
  13. ROCURONIUM [Concomitant]
     Active Substance: ROCURONIUM BROMIDE
     Indication: General anaesthesia
  14. ROCURONIUM [Concomitant]
     Active Substance: ROCURONIUM BROMIDE
  15. ROPIVACAINE [Concomitant]
     Active Substance: ROPIVACAINE
     Indication: Nerve block
  16. DESFLURANE [Concomitant]
     Active Substance: DESFLURANE
     Indication: General anaesthesia

REACTIONS (1)
  - Vocal cord dysfunction [Unknown]
